FAERS Safety Report 8785073 (Version 4)
Quarter: 2013Q1

REPORT INFORMATION
  Report Type: Spontaneous
  Country: MA (occurrence: None)
  Receive Date: 20120831
  Receipt Date: 20120911
  Transmission Date: 20140127
  Serious: No
  Sender: FDA-Public Use
  Company Number: 7157073

PATIENT
  Age: 35 Year
  Sex: Male

DRUGS (1)
  1. L-THYROXIN [Suspect]
     Indication: HYPOTHYROIDISM
     Dosage: (EVERY MORNING, HALF AN HOUR BEFORE MEAL)

REACTIONS (7)
  - Drug ineffective [None]
  - Helicobacter gastritis [None]
  - Hypothyroidism [None]
  - Disease progression [None]
  - Treatment noncompliance [None]
  - Bradycardia [None]
  - Psychomotor retardation [None]
